FAERS Safety Report 7544296-6 (Version None)
Quarter: 2011Q2

REPORT INFORMATION
  Report Type: 
  Country: None (occurrence: None)
  Receive Date: 20110613
  Receipt Date: 20071203
  Transmission Date: 20111010
  Serious: Yes (Other)
  Sender: FDA-Public Use
  Company Number: PHNR2007AU01894

PATIENT
  Sex: Male

DRUGS (2)
  1. CLOZAPINE [Suspect]
     Dosage: 75 - 650MG AT NIGHT
     Route: 048
     Dates: start: 20061211, end: 20071005
  2. INTERFERON [Suspect]
     Indication: HEPATITIS C
     Dosage: 180 MG, UNK
     Dates: start: 20070801

REACTIONS (5)
  - APATHY [None]
  - WHITE BLOOD CELL COUNT DECREASED [None]
  - HALLUCINATION, AUDITORY [None]
  - NEUTROPHIL COUNT DECREASED [None]
  - HEPATITIS C [None]
